FAERS Safety Report 16945107 (Version 1)
Quarter: 2019Q4

REPORT INFORMATION
  Report Type: Spontaneous
  Country: US (occurrence: US)
  Receive Date: 20190830
  Receipt Date: 20190830
  Transmission Date: 20200122
  Serious: No
  Sender: FDA-Public Use
  Company Number: None

PATIENT
  Age: 57 Year
  Sex: Male

DRUGS (1)
  1. PREVYMIS [Suspect]
     Active Substance: LETERMOVIR
     Route: 048

REACTIONS (4)
  - Eye pain [None]
  - Ocular hyperaemia [None]
  - Treatment noncompliance [None]
  - Therapy cessation [None]

NARRATIVE: CASE EVENT DATE: 20190828
